FAERS Safety Report 7202492-1 (Version None)
Quarter: 2010Q4

REPORT INFORMATION
  Report Type: 
  Country: None (occurrence: None)
  Receive Date: 20101229
  Receipt Date: 20101222
  Transmission Date: 20110411
  Serious: Yes (Hospitalization)
  Sender: FDA-Public Use
  Company Number: Z0006959A

PATIENT
  Age: 48 Year
  Sex: Female
  Weight: 70.6 kg

DRUGS (4)
  1. TOPOTECAN [Suspect]
     Indication: SARCOMA
     Dosage: 10MG CYCLIC
     Route: 048
     Dates: start: 20101206
  2. PAZOPANIB [Suspect]
     Indication: SARCOMA
     Dosage: 800MG PER DAY
     Route: 048
     Dates: start: 20101122
  3. GASTROGRAFIN [Concomitant]
     Indication: ABDOMINAL PAIN
     Dosage: 30ML SINGLE DOSE
     Route: 048
     Dates: start: 20101212, end: 20101212
  4. INSULIN ASPART [Concomitant]
     Indication: TYPE 2 DIABETES MELLITUS
     Dosage: 6UNIT SINGLE DOSE
     Route: 058
     Dates: start: 20101212, end: 20101212

REACTIONS (1)
  - HYPERGLYCAEMIA [None]
